FAERS Safety Report 6356616-9 (Version None)
Quarter: 2009Q3

REPORT INFORMATION
  Report Type: 
  Country: None (occurrence: None)
  Receive Date: 20090910
  Receipt Date: 20090910
  Transmission Date: 20100115
  Serious: Yes (Other)
  Sender: FDA-Public Use
  Company Number: None

PATIENT
  Weight: 145 kg

DRUGS (1)
  1. LEVAQUIN [Suspect]
     Dosage: 750 MG DAILY PO 5 DAYS AS PRESCRIBED
     Route: 048
     Dates: start: 20090610, end: 20090614

REACTIONS (12)
  - ANXIETY [None]
  - AXONAL NEUROPATHY [None]
  - CONVULSION [None]
  - DEMYELINATING POLYNEUROPATHY [None]
  - DEPRESSED MOOD [None]
  - DIZZINESS [None]
  - FATIGUE [None]
  - FEAR [None]
  - FEELING ABNORMAL [None]
  - IMPAIRED WORK ABILITY [None]
  - INSOMNIA [None]
  - PERIPHERAL MOTOR NEUROPATHY [None]
